FAERS Safety Report 23756617 (Version 4)
Quarter: 2024Q3

REPORT INFORMATION
  Report Type: Report from Study
  Country: US (occurrence: US)
  Receive Date: 20240418
  Receipt Date: 20240717
  Transmission Date: 20241017
  Serious: Yes (Other)
  Sender: MYOVANT SCIENCES
  Company Number: US-MYOVANT SCIENCES GMBH-2024MYSCI0400476

PATIENT
  Age: 64 Year
  Sex: Male

DRUGS (6)
  1. ORGOVYX [Suspect]
     Active Substance: RELUGOLIX
     Indication: Prostate cancer
     Dosage: 360 MILLIGRAM, ONE TIME DOSE
     Route: 048
     Dates: start: 20240402, end: 20240402
  2. ORGOVYX [Suspect]
     Active Substance: RELUGOLIX
     Dosage: 120 MILLIGRAM, QD
     Route: 048
     Dates: start: 20240403
  3. ORGOVYX [Suspect]
     Active Substance: RELUGOLIX
     Dosage: UNK
  4. ORGOVYX [Suspect]
     Active Substance: RELUGOLIX
     Dosage: UNK
  5. XANAX [Suspect]
     Active Substance: ALPRAZOLAM
     Indication: Anxiety
     Dosage: UNKNOWN
     Route: 065
  6. SEMAGLUTIDE [Concomitant]
     Active Substance: SEMAGLUTIDE
     Indication: Product used for unknown indication
     Dosage: UNK
     Route: 065

REACTIONS (12)
  - Diabetes mellitus inadequate control [Not Recovered/Not Resolved]
  - Anxiety [Not Recovered/Not Resolved]
  - Thinking abnormal [Unknown]
  - Vertigo [Unknown]
  - Dizziness [Unknown]
  - Hyperhidrosis [Unknown]
  - Fatigue [Unknown]
  - Arthralgia [Unknown]
  - Blood triglycerides increased [Unknown]
  - Depression [Recovered/Resolved]
  - Nocturia [Unknown]
  - Abdominal pain upper [Unknown]

NARRATIVE: CASE EVENT DATE: 20240401
